FAERS Safety Report 20573938 (Version 10)
Quarter: 2023Q1

REPORT INFORMATION
  Report Type: Spontaneous
  Country: US (occurrence: US)
  Receive Date: 20220309
  Receipt Date: 20230224
  Transmission Date: 20230418
  Serious: Yes (Hospitalization)
  Sender: FDA-Public Use
  Company Number: US-PFIZER INC-2020233140

PATIENT
  Age: 72 Year
  Sex: Female
  Weight: 62.14 kg

DRUGS (3)
  1. XELJANZ XR [Suspect]
     Active Substance: TOFACITINIB CITRATE
     Indication: Rheumatoid arthritis
     Dosage: 11 MG (1 TABLET), ALTERNATE DAY (11MG ONE TABLET ON EVEN DAYS)
     Route: 048
  2. XELJANZ XR [Suspect]
     Active Substance: TOFACITINIB CITRATE
     Dosage: 22 MG (2 TABLETS OF 11 MG), ALTERNATE DAY (TWO TABLETS ON ODD DAYS)
     Route: 048
  3. XELJANZ XR [Suspect]
     Active Substance: TOFACITINIB CITRATE
     Dosage: 11 MG, 1X/DAY
     Route: 048

REACTIONS (5)
  - Cardiac pacemaker replacement [Unknown]
  - Off label use [Unknown]
  - Product dispensing error [Unknown]
  - Hypoacusis [Not Recovered/Not Resolved]
  - Fatigue [Unknown]

NARRATIVE: CASE EVENT DATE: 20230210
